FAERS Safety Report 17439337 (Version 2)
Quarter: 2024Q2

REPORT INFORMATION
  Report Type: Other
  Country: CO (occurrence: None)
  Receive Date: 20200220
  Receipt Date: 20240507
  Transmission Date: 20240716
  Serious: Yes (Hospitalization)
  Sender: FDA-Public Use
  Company Number: CO-ROCHE-2494171

PATIENT
  Sex: Female

DRUGS (1)
  1. MABTHERA [Suspect]
     Active Substance: RITUXIMAB
     Indication: Product used for unknown indication
     Route: 065

REACTIONS (17)
  - Illness [Unknown]
  - Haematological infection [Unknown]
  - Gastrointestinal infection [Unknown]
  - Kidney infection [Unknown]
  - Immunodeficiency [Unknown]
  - Weight decreased [Unknown]
  - Gait inability [Unknown]
  - Illness [Unknown]
  - Vomiting [Unknown]
  - Decreased appetite [Unknown]
  - Dysgeusia [Unknown]
  - Pain [Unknown]
  - Osteoporosis [Unknown]
  - Pain in extremity [Unknown]
  - Fall [Unknown]
  - Bone pain [Unknown]
  - Arthralgia [Unknown]
